FAERS Safety Report 9032068 (Version 4)
Quarter: 2016Q4

REPORT INFORMATION
  Report Type: Spontaneous
  Country: US (occurrence: US)
  Receive Date: 20130125
  Receipt Date: 20161109
  Transmission Date: 20170207
  Serious: Yes (Other)
  Sender: FDA-Public Use
  Company Number: US-PFIZER INC-2013032670

PATIENT
  Age: 51 Year
  Sex: Female
  Weight: 127 kg

DRUGS (10)
  1. PRILOSEC [Concomitant]
     Active Substance: OMEPRAZOLE MAGNESIUM
     Indication: DYSPEPSIA
     Dosage: 20 MG, 1X/DAY (ONE EVERY MORNING BEFORE SHE EATS)
  2. LYRICA [Suspect]
     Active Substance: PREGABALIN
     Indication: DIABETIC NEUROPATHY
     Dosage: 150 MG, ALTERNATE DAY (ONE EVERY OTHER NIGHT)
     Route: 048
     Dates: end: 2015
  3. METFORMIN [Suspect]
     Active Substance: METFORMIN HYDROCHLORIDE
     Indication: DIABETES MELLITUS
     Dosage: 500 MG, 2X/DAY (ONE IN THE MORNING AND AT 6PM)
  4. DULOXETINE. [Concomitant]
     Active Substance: DULOXETINE
     Indication: NERVE INJURY
     Dosage: 60 MG, AS NEEDED (MORNING EVERY DAY)
     Dates: start: 2016
  5. IRON [Concomitant]
     Active Substance: IRON
     Dosage: UNK
  6. ZOCOR [Concomitant]
     Active Substance: SIMVASTATIN
     Indication: BLOOD CHOLESTEROL ABNORMAL
     Dosage: 20 MG, 1X/DAY
  7. LORTAB [Concomitant]
     Active Substance: ACETAMINOPHEN\HYDROCODONE BITARTRATE
     Indication: PAIN
     Dosage: 1 DF, 2X/DAY
  8. LYRICA [Suspect]
     Active Substance: PREGABALIN
     Indication: NERVE INJURY
     Dosage: 150 MG, 2X/DAY
     Route: 048
  9. LYRICA [Suspect]
     Active Substance: PREGABALIN
     Indication: PARAESTHESIA
     Dosage: 225 MG, UNK
     Route: 048
     Dates: start: 2002
  10. LISINOPRIL. [Concomitant]
     Active Substance: LISINOPRIL
     Indication: BLOOD PRESSURE ABNORMAL
     Dosage: 25 MG, 1X/DAY

REACTIONS (15)
  - Mental disorder [Not Recovered/Not Resolved]
  - Fall [Unknown]
  - Abasia [Unknown]
  - Balance disorder [Not Recovered/Not Resolved]
  - Burning sensation [Unknown]
  - Speech disorder [Not Recovered/Not Resolved]
  - General physical health deterioration [Unknown]
  - Disturbance in attention [Unknown]
  - Somnolence [Unknown]
  - Sensory loss [Unknown]
  - Cardiovascular disorder [Unknown]
  - Oedema peripheral [Unknown]
  - Hypoaesthesia [Not Recovered/Not Resolved]
  - Drug intolerance [Unknown]
  - Dizziness [Unknown]
